FAERS Safety Report 10145901 (Version 1)
Quarter: 2014Q2

REPORT INFORMATION
  Report Type: Spontaneous
  Country: US (occurrence: US)
  Receive Date: 20140501
  Receipt Date: 20140501
  Transmission Date: 20141212
  Serious: No
  Sender: FDA-Public Use
  Company Number: US-ABBVIE-14P-163-1219384-00

PATIENT
  Age: 63 Year
  Sex: Female
  Weight: 62.2 kg

DRUGS (1)
  1. CREON [Suspect]
     Indication: ENZYME SUPPLEMENTATION
     Dosage: THREE OR FOUR CAPSULES WITH MEALS
     Dates: start: 201402

REACTIONS (1)
  - Abdominal pain [Recovered/Resolved]
